FAERS Safety Report 10966962 (Version 7)
Quarter: 2015Q4

REPORT INFORMATION
  Report Type: Report from Study
  Country: DO (occurrence: DO)
  Receive Date: 20150330
  Receipt Date: 20151007
  Transmission Date: 20160304
  Serious: Yes (Hospitalization, Other)
  Sender: FDA-Public Use
  Company Number: DO-ABBVIE-15K-279-1354349-00

PATIENT
  Sex: Male

DRUGS (1)
  1. HUMIRA [Suspect]
     Active Substance: ADALIMUMAB
     Indication: PSORIASIS
     Route: 058
     Dates: start: 201401, end: 20150127

REACTIONS (6)
  - Plasmacytoma [Unknown]
  - Schwannoma [Not Recovered/Not Resolved]
  - Incision site pain [Not Recovered/Not Resolved]
  - Benign lung neoplasm [Not Recovered/Not Resolved]
  - Anti-vimentin antibody positive [Not Recovered/Not Resolved]
  - Blood glucose increased [Unknown]
